FAERS Safety Report 6896867-8 (Version None)
Quarter: 2010Q3

REPORT INFORMATION
  Report Type: 
  Country: None (occurrence: None)
  Receive Date: 20100802
  Receipt Date: 20070418
  Transmission Date: 20110219
  Serious: Yes (Other)
  Sender: FDA-Public Use
  Company Number: US-PFIZER INC-2007016747

PATIENT
  Age: 65 Year
  Sex: Female
  Weight: 71.7 kg

DRUGS (11)
  1. LYRICA [Suspect]
     Indication: FIBROMYALGIA
     Dates: start: 20070222, end: 20070223
  2. CELEXA [Concomitant]
     Dates: start: 20040101
  3. WARFARIN SODIUM [Concomitant]
     Indication: THROMBOSIS
     Dates: start: 20060601
  4. MAGNESIUM [Concomitant]
     Dates: start: 20040101
  5. ALL OTHER THERAPEUTIC PRODUCTS [Concomitant]
     Dates: start: 20060601
  6. PREVACID [Concomitant]
     Indication: GASTRIC DISORDER
     Dates: start: 20040101
  7. CLARITIN [Concomitant]
     Indication: HYPERSENSITIVITY
  8. SPIRIVA [Concomitant]
     Dates: start: 20060601
  9. MONTELUKAST [Concomitant]
     Indication: HYPERSENSITIVITY
     Dates: start: 20060601
  10. VITAMIN D [Concomitant]
     Dates: start: 20040101
  11. AMBIEN [Concomitant]
     Dates: start: 20060601

REACTIONS (4)
  - DIZZINESS [None]
  - HEADACHE [None]
  - MALAISE [None]
  - VISION BLURRED [None]
